FAERS Safety Report 6253681-4 (Version None)
Quarter: 2009Q3

REPORT INFORMATION
  Report Type: 
  Country: None (occurrence: None)
  Receive Date: 20090701
  Receipt Date: 20090624
  Transmission Date: 20100115
  Serious: Yes (Hospitalization, Other)
  Sender: FDA-Public Use
  Company Number: ES-GENENTECH-285733

PATIENT
  Age: 78 Year
  Sex: Male

DRUGS (6)
  1. MABTHERA [Suspect]
     Indication: CHRONIC LYMPHOCYTIC LEUKAEMIA
     Dosage: UNK
     Route: 042
     Dates: start: 20090506, end: 20090603
  2. FLUDARABINE PHOSPHATE [Concomitant]
     Indication: DRUG USE FOR UNKNOWN INDICATION
     Dosage: UNK
     Dates: start: 20090506, end: 20090605
  3. MITOXANTRONE [Concomitant]
     Indication: DRUG USE FOR UNKNOWN INDICATION
     Dosage: UNK
     Dates: start: 20090506, end: 20090603
  4. GENOXAL [Concomitant]
     Indication: DRUG USE FOR UNKNOWN INDICATION
     Dosage: UNK
     Dates: start: 20090506, end: 20090605
  5. SEPTRIN [Concomitant]
     Indication: DRUG USE FOR UNKNOWN INDICATION
  6. VALTREX [Concomitant]
     Indication: DRUG USE FOR UNKNOWN INDICATION

REACTIONS (5)
  - ANGIOEDEMA [None]
  - APHONIA [None]
  - COUGH [None]
  - DYSPHONIA [None]
  - PRURITUS [None]
